FAERS Safety Report 5343979-6 (Version None)
Quarter: 2007Q2

REPORT INFORMATION
  Report Type: 
  Country: None (occurrence: None)
  Receive Date: 20070604
  Receipt Date: 20070530
  Transmission Date: 20071010
  Serious: Yes (Other)
  Sender: FDA-Public Use
  Company Number: JP-AVENTIS-200512450JP

PATIENT
  Age: 47 Year
  Sex: Female

DRUGS (2)
  1. TAXOTERE [Suspect]
     Route: 041
     Dates: start: 20030601
  2. XELODA [Concomitant]

REACTIONS (2)
  - OEDEMA [None]
  - SCLERODERMA [None]
